FAERS Safety Report 7523773-8 (Version None)
Quarter: 2011Q2

REPORT INFORMATION
  Report Type: 
  Country: None (occurrence: None)
  Receive Date: 20110603
  Receipt Date: 20110527
  Transmission Date: 20111010
  Serious: Yes (Hospitalization, Other)
  Sender: FDA-Public Use
  Company Number: US-ACTELION-A-US2011-48845

PATIENT

DRUGS (7)
  1. PREDNISONE [Concomitant]
  2. ASPIRIN [Concomitant]
  3. NORVASC [Concomitant]
  4. TRACLEER [Suspect]
     Indication: PULMONARY ARTERIAL HYPERTENSION
     Dosage: 62.5 MG, BID
     Route: 048
     Dates: start: 20110419
  5. OMEPRAZOLE [Concomitant]
  6. PLAQUENIL [Concomitant]
  7. LEVOTHYROXINE SODIUM [Concomitant]

REACTIONS (5)
  - PERICARDIAL EFFUSION [None]
  - DYSPNOEA [None]
  - PERICARDITIS [None]
  - PLEURITIC PAIN [None]
  - PAIN [None]
